FAERS Safety Report 8759583 (Version 2)
Quarter: 2012Q4

REPORT INFORMATION
  Report Type: 
  Country: US (occurrence: US)
  Receive Date: 20120829
  Receipt Date: 20120913
  Transmission Date: 20130627
  Serious: Yes (Death, Hospitalization)
  Sender: FDA-Public Use
  Company Number: US-ACTELION-A-NJ2012-70327

PATIENT
  Age: 49 Year
  Sex: Male

DRUGS (1)
  1. TRACLEER [Suspect]
     Indication: PULMONARY ARTERIAL HYPERTENSION
     Route: 048

REACTIONS (2)
  - Pulmonary hypertension [Fatal]
  - Oxygen saturation decreased [Fatal]
